FAERS Safety Report 13077992 (Version 1)
Quarter: 2017Q1

REPORT INFORMATION
  Report Type: Spontaneous
  Country: US (occurrence: US)
  Receive Date: 20170102
  Receipt Date: 20170102
  Transmission Date: 20170428
  Serious: No
  Sender: FDA-Public Use
  Company Number: US-ASTRAZENECA-2016SF31561

PATIENT
  Sex: Female

DRUGS (2)
  1. METOPROLOL SUCCINATE. [Suspect]
     Active Substance: METOPROLOL SUCCINATE
     Indication: PALPITATIONS
     Dosage: 25 MG, UNKNOWN (MFG BY AZ, MFG FOR PAR)
     Route: 048
  2. UNSPECIFIED [Concomitant]
     Active Substance: UNSPECIFIED INGREDIENT
     Dosage: GENERIC

REACTIONS (9)
  - Malaise [Unknown]
  - Product use issue [Unknown]
  - Swelling face [Unknown]
  - Dysphagia [Unknown]
  - Hypersensitivity [Unknown]
  - Weight decreased [Unknown]
  - Throat irritation [Unknown]
  - Headache [Unknown]
  - Off label use [Unknown]
